FAERS Safety Report 7914890-9 (Version None)
Quarter: 2011Q4

REPORT INFORMATION
  Report Type: 
  Country: None (occurrence: None)
  Receive Date: 20111115
  Receipt Date: 20111110
  Transmission Date: 20120403
  Serious: Yes (Hospitalization, Other)
  Sender: FDA-Public Use
  Company Number: JP-ABBOTT-11P-087-0865193-00

PATIENT
  Sex: Female
  Weight: 47 kg

DRUGS (11)
  1. HUMIRA [Suspect]
     Indication: RHEUMATOID ARTHRITIS
     Route: 058
     Dates: start: 20110901, end: 20111001
  2. OLOPATADINE HYDROCHLORIDE [Concomitant]
     Indication: RHINITIS ALLERGIC
     Route: 048
     Dates: end: 20111014
  3. ISONIAZID [Concomitant]
     Indication: ANTIBIOTIC PROPHYLAXIS
     Route: 048
     Dates: start: 20110917, end: 20111014
  4. PREDNISOLONE [Concomitant]
     Indication: RHEUMATOID ARTHRITIS
     Route: 048
     Dates: start: 20100305, end: 20101122
  5. HUMIRA [Suspect]
     Indication: JUVENILE ARTHRITIS
  6. PREDNISOLONE [Concomitant]
     Route: 048
     Dates: start: 20101123, end: 20111014
  7. METHOTREXATE [Concomitant]
     Dates: start: 20110801, end: 20111014
  8. REBAMIPIDE [Concomitant]
     Indication: GASTRITIS
     Route: 048
  9. METHOTREXATE [Concomitant]
     Indication: RHEUMATOID ARTHRITIS
     Dates: start: 20110620, end: 20110731
  10. FOLIC ACID [Concomitant]
     Indication: VITAMIN SUPPLEMENTATION
     Route: 048
     Dates: start: 20110620, end: 20111014
  11. LANSOPRAZOLE [Concomitant]
     Indication: GASTRITIS
     Route: 048
     Dates: end: 20111014

REACTIONS (2)
  - HEPATIC FUNCTION ABNORMAL [None]
  - JUVENILE ARTHRITIS [None]
